FAERS Safety Report 8060142-9 (Version None)
Quarter: 2012Q1

REPORT INFORMATION
  Report Type: 
  Country: None (occurrence: None)
  Receive Date: 20120120
  Receipt Date: 20120119
  Transmission Date: 20120608
  Serious: Yes (Death, Hospitalization)
  Sender: FDA-Public Use
  Company Number: US-B.I. PHARMACEUTICALS,INC./RIDGEFIELD-2012-BP-01175BP

PATIENT
  Age: 78 Year
  Sex: Female

DRUGS (3)
  1. AMIODARONE HCL [Concomitant]
     Route: 048
  2. MICARDIS [Concomitant]
     Route: 048
  3. PRADAXA [Suspect]
     Indication: ATRIAL FIBRILLATION
     Dosage: 300 MG
     Route: 048
     Dates: start: 20111001

REACTIONS (4)
  - RENAL HAEMATOMA [None]
  - GASTROINTESTINAL HAEMORRHAGE [None]
  - HAEMORRHAGE INTRACRANIAL [None]
  - RENAL FAILURE [None]
